FAERS Safety Report 15611369 (Version 1)
Quarter: 2018Q4

REPORT INFORMATION
  Report Type: Spontaneous
  Country: IT (occurrence: IT)
  Receive Date: 20181113
  Receipt Date: 20181113
  Transmission Date: 20190205
  Serious: Yes (Hospitalization)
  Sender: FDA-Public Use
  Company Number: IT-SUN PHARMACEUTICAL INDUSTRIES LTD-2018RR-190791

PATIENT
  Age: 49 Year
  Sex: Male
  Weight: 85 kg

DRUGS (3)
  1. ARIPIPRAZOLE. [Concomitant]
     Active Substance: ARIPIPRAZOLE
     Indication: DEPRESSION
     Dosage: ()
     Route: 065
  2. ESCITALOPRAM [Suspect]
     Active Substance: ESCITALOPRAM OXALATE
     Indication: INTENTIONAL SELF-INJURY
     Dosage: IN TOTAL
     Route: 048
     Dates: start: 20181022, end: 20181022
  3. LORAZEPAM. [Suspect]
     Active Substance: LORAZEPAM
     Indication: INTENTIONAL SELF-INJURY
     Dosage: IN TOTAL
     Route: 048
     Dates: start: 20181022, end: 20181022

REACTIONS (3)
  - Drug abuse [Recovered/Resolved]
  - Sopor [Recovered/Resolved]
  - Intentional self-injury [Recovered/Resolved]

NARRATIVE: CASE EVENT DATE: 20181022
